FAERS Safety Report 8467863-4 (Version None)
Quarter: 2012Q2

REPORT INFORMATION
  Report Type: 
  Country: None (occurrence: None)
  Receive Date: 20120626
  Receipt Date: 20120618
  Transmission Date: 20120825
  Serious: Yes (Congenital Anomaly)
  Sender: FDA-Public Use
  Company Number: DE-GLAXOSMITHKLINE-D0076001A

PATIENT
  Age: 0 Year
  Sex: Female
  Weight: 3.3 kg

DRUGS (3)
  1. CLONAZEPAM [Suspect]
     Indication: EPILEPSY
     Dosage: .5MG PER DAY
     Route: 064
     Dates: start: 20110414, end: 20120106
  2. LAMOTRIGINE [Suspect]
     Indication: EPILEPSY
     Dosage: 75MG PER DAY
     Route: 064
     Dates: start: 20110414, end: 20120106
  3. LEVOTHYROXINE SODIUM [Concomitant]
     Indication: HYPOTHYROIDISM
     Route: 064
     Dates: start: 20110414, end: 20120106

REACTIONS (4)
  - ATRIAL SEPTAL DEFECT [None]
  - FOETAL EXPOSURE DURING PREGNANCY [None]
  - CEPHALO-PELVIC DISPROPORTION [None]
  - VENTRICULAR SEPTAL DEFECT [None]
